FAERS Safety Report 5698359-0 (Version None)
Quarter: 2008Q2

REPORT INFORMATION
  Report Type: 
  Country: None (occurrence: None)
  Receive Date: 20080403
  Receipt Date: 20080319
  Transmission Date: 20081010
  Serious: Yes (Other)
  Sender: FDA-Public Use
  Company Number: 2008S1004802

PATIENT
  Age: 60 Year
  Sex: Female

DRUGS (2)
  1. FLUOXETINE [Suspect]
     Indication: DEPRESSION
     Dosage: 20 MG; TWICE A DAY; ORAL
     Route: 048
     Dates: start: 20071001
  2. LEVOTHYROXINE SODIUM [Concomitant]

REACTIONS (2)
  - ALCOHOL INTERACTION [None]
  - HALLUCINATION [None]
